FAERS Safety Report 18718165 (Version 1)
Quarter: 2021Q1

REPORT INFORMATION
  Report Type: Spontaneous
  Country: US (occurrence: US)
  Receive Date: 20210108
  Receipt Date: 20210108
  Transmission Date: 20210419
  Serious: Yes (Other)
  Sender: FDA-Public Use
  Company Number: US-ELI_LILLY_AND_COMPANY-US202101002171

PATIENT

DRUGS (3)
  1. HUMIRA [Suspect]
     Active Substance: ADALIMUMAB
     Indication: PRODUCT USED FOR UNKNOWN INDICATION
     Dosage: UNK, UNKNOWN
     Route: 058
  2. XELJANZ XR [Suspect]
     Active Substance: TOFACITINIB CITRATE
     Indication: RHEUMATOID ARTHRITIS
     Dosage: 11 MG, DAILY
     Route: 048
     Dates: start: 20191118
  3. FORTEO [Suspect]
     Active Substance: TERIPARATIDE
     Indication: PRODUCT USED FOR UNKNOWN INDICATION
     Dosage: UNK, UNKNOWN
     Route: 065

REACTIONS (13)
  - Blood pressure abnormal [Recovering/Resolving]
  - Loss of consciousness [Unknown]
  - Discouragement [Not Recovered/Not Resolved]
  - Depression [Not Recovered/Not Resolved]
  - Rheumatoid arthritis [Unknown]
  - Headache [Unknown]
  - Fall [Unknown]
  - Post-traumatic pain [Unknown]
  - Dizziness [Not Recovered/Not Resolved]
  - Pain [Unknown]
  - Gait disturbance [Unknown]
  - Contusion [Unknown]
  - Hypertension [Recovering/Resolving]
